FAERS Safety Report 9058728 (Version 1)
Quarter: 2013Q1

REPORT INFORMATION
  Report Type: Spontaneous
  Country: US (occurrence: US)
  Receive Date: 20130204
  Receipt Date: 20130204
  Transmission Date: 20140127
  Serious: Yes (Hospitalization, Other)
  Sender: FDA-Public Use
  Company Number: US-BAYER-2013-012435

PATIENT
  Age: 27 Year
  Sex: Female
  Weight: 60.32 kg

DRUGS (8)
  1. YAZ [Suspect]
  2. OCELLA [Suspect]
  3. FIORICET [Concomitant]
     Indication: MIGRAINE
     Dosage: OCCASIONALLY
  4. ZITHROMAX [Concomitant]
     Indication: UNEVALUABLE EVENT
     Dosage: UNK
     Dates: start: 20090131
  5. ROCEPHIN [Concomitant]
     Indication: LEUKOCYTOSIS
     Dosage: 1 G, EVERY 24 HOURS
     Route: 042
     Dates: start: 20090131
  6. TYLENOL [Concomitant]
     Dosage: UNK
     Dates: start: 20090131
  7. CIPROFLOXACIN [Concomitant]
     Indication: URINARY TRACT INFECTION
     Dosage: 500 MG, BID FOR 10 DAYS
     Dates: start: 20090201
  8. MEPERIDINE [Concomitant]

REACTIONS (2)
  - Pulmonary embolism [Recovered/Resolved]
  - Cholecystitis [None]
